FAERS Safety Report 18659450 (Version 2)
Quarter: 2021Q2

REPORT INFORMATION
  Report Type: Spontaneous
  Country: US (occurrence: US)
  Receive Date: 20201224
  Receipt Date: 20210408
  Transmission Date: 20210717
  Serious: No
  Sender: FDA-Public Use
  Company Number: US-TEVA-2020-US-1861805

PATIENT
  Age: 38 Year
  Sex: Female

DRUGS (14)
  1. POTASSIUM CHLORIDE. [Concomitant]
     Active Substance: POTASSIUM CHLORIDE
  2. SYNRIBO [Suspect]
     Active Substance: OMACETAXINE MEPESUCCINATE
     Indication: CHRONIC MYELOID LEUKAEMIA
     Dosage: DOSE: 2.3 MG, BIDX14 DAYS OF 28 DAY CYCLE
     Route: 058
     Dates: start: 20201021
  3. LAMICTAL [Concomitant]
     Active Substance: LAMOTRIGINE
  4. SERTRALINE HCL [Concomitant]
     Active Substance: SERTRALINE HYDROCHLORIDE
  5. SYNRIBO [Suspect]
     Active Substance: OMACETAXINE MEPESUCCINATE
     Indication: PHILADELPHIA CHROMOSOME POSITIVE
     Dosage: DOSE: 1.8 MG, BID FOR 7 DAYS ON/7OFF
     Route: 058
  6. MULTIVITAMIN [Concomitant]
     Active Substance: VITAMINS
  7. ONFI [Concomitant]
     Active Substance: CLOBAZAM
  8. LOMOTIL [Concomitant]
     Active Substance: ATROPINE SULFATE\DIPHENOXYLATE HYDROCHLORIDE
  9. VITAMIN D [Concomitant]
     Active Substance: VITAMIN D NOS
  10. TYLENOL EXTRA STRENGTH FO [Concomitant]
  11. HYDROXYUREA. [Concomitant]
     Active Substance: HYDROXYUREA
  12. KEPPRA [Concomitant]
     Active Substance: LEVETIRACETAM
  13. LASIX [Concomitant]
     Active Substance: FUROSEMIDE
  14. HYDROXYZINE HCL [Concomitant]
     Active Substance: HYDROXYZINE HYDROCHLORIDE

REACTIONS (1)
  - Red blood cell count decreased [Recovered/Resolved]

NARRATIVE: CASE EVENT DATE: 2020
